FAERS Safety Report 21258446 (Version 1)
Quarter: 2022Q3

REPORT INFORMATION
  Report Type: Spontaneous
  Country: DE (occurrence: DE)
  Receive Date: 20220826
  Receipt Date: 20220826
  Transmission Date: 20221026
  Serious: Yes (Hospitalization, Other)
  Sender: FDA-Public Use
  Company Number: None

PATIENT
  Sex: Male

DRUGS (1)
  1. LEVOTHYROXINE [Suspect]
     Active Substance: LEVOTHYROXINE
     Indication: Product used for unknown indication
     Dosage: INTAKE OVER A LONGER PERIOD OF TIME

REACTIONS (6)
  - Nausea [Unknown]
  - Tremor [Unknown]
  - Cold sweat [Unknown]
  - Blood pressure increased [Recovered/Resolved]
  - Vision blurred [Unknown]
  - Headache [Unknown]
